FAERS Safety Report 7001996-4 (Version None)
Quarter: 2010Q3

REPORT INFORMATION
  Report Type: 
  Country: None (occurrence: None)
  Receive Date: 20100920
  Receipt Date: 20100914
  Transmission Date: 20110219
  Serious: Yes (Hospitalization)
  Sender: FDA-Public Use
  Company Number: B0593299A

PATIENT
  Sex: Male
  Weight: 66.7 kg

DRUGS (5)
  1. LAPATINIB [Suspect]
     Indication: TRANSITIONAL CELL CANCER OF THE RENAL PELVIS AND URETER
     Route: 048
     Dates: start: 20090630
  2. CISPLATIN [Suspect]
     Indication: TRANSITIONAL CELL CANCER OF THE RENAL PELVIS AND URETER
     Route: 042
     Dates: start: 20090701
  3. GEMCITABINE [Suspect]
     Indication: TRANSITIONAL CELL CANCER OF THE RENAL PELVIS AND URETER
     Route: 042
     Dates: start: 20090630
  4. SIMVASTATIN [Concomitant]
     Indication: BLOOD CHOLESTEROL INCREASED
     Dates: start: 20090504
  5. PANTALOC [Concomitant]
     Indication: DYSPEPSIA
     Route: 048
     Dates: start: 20090504

REACTIONS (4)
  - ANAEMIA [None]
  - KLEBSIELLA TEST POSITIVE [None]
  - PYREXIA [None]
  - URINARY TRACT INFECTION [None]
